FAERS Safety Report 14859491 (Version 1)
Quarter: 2018Q2

REPORT INFORMATION
  Report Type: Spontaneous
  Country: TN (occurrence: TN)
  Receive Date: 20180508
  Receipt Date: 20180508
  Transmission Date: 20180711
  Serious: Yes (Hospitalization)
  Sender: FDA-Public Use
  Company Number: TN-ABBVIE-18S-160-2343094-00

PATIENT
  Age: 80 Year
  Sex: Male

DRUGS (4)
  1. DEPAKINE CHRONO [Suspect]
     Active Substance: VALPROATE SODIUM
     Dosage: 500 MILLIGRAM(S); 3 TIMES A DAY
     Route: 048
     Dates: start: 20180320, end: 20180322
  2. DEPAKINE CHRONO [Suspect]
     Active Substance: VALPROATE SODIUM
     Indication: EPILEPSY
     Dosage: 500 MILLIGRAM(S);TWICE A DAY
     Route: 048
  3. PRAMIPEXOLE DIHYDROCHLORIDE. [Concomitant]
     Active Substance: PRAMIPEXOLE DIHYDROCHLORIDE
     Indication: PRODUCT USED FOR UNKNOWN INDICATION
  4. BENSERAZIDE HYDROCHLORIDE/LEVODOPA [Concomitant]
     Active Substance: BENSERAZIDE HYDROCHLORIDE\LEVODOPA
     Indication: PRODUCT USED FOR UNKNOWN INDICATION

REACTIONS (7)
  - Anticonvulsant drug level decreased [Recovered/Resolved]
  - Somnolence [Recovered/Resolved]
  - Status epilepticus [Recovered/Resolved]
  - Hypotension [Recovered/Resolved]
  - Depressed level of consciousness [Recovered/Resolved]
  - Wrong technique in product usage process [Unknown]
  - Oedema [Recovered/Resolved]
